FAERS Safety Report 25540500 (Version 2)
Quarter: 2025Q3

REPORT INFORMATION
  Report Type: Spontaneous
  Country: RU (occurrence: RU)
  Receive Date: 20250710
  Receipt Date: 20250802
  Transmission Date: 20251021
  Serious: Yes (Other)
  Sender: ALEXION PHARMACEUTICALS
  Company Number: RU-ASTRAZENECA-202507EAF003660RU

PATIENT
  Age: 7 Year
  Sex: Male
  Weight: 26.5 kg

DRUGS (10)
  1. KOSELUGO [Suspect]
     Active Substance: SELUMETINIB
     Indication: Neoplasm
  2. KOSELUGO [Suspect]
     Active Substance: SELUMETINIB
  3. KOSELUGO [Suspect]
     Active Substance: SELUMETINIB
  4. ATENOLOL [Concomitant]
     Active Substance: ATENOLOL
  5. AMLODIPINE BESYLATE [Concomitant]
     Active Substance: AMLODIPINE BESYLATE
  6. VALSARTAN [Concomitant]
     Active Substance: VALSARTAN
  7. CHLOROPYRAMINE [Concomitant]
     Active Substance: CHLOROPYRAMINE
  8. PREDNISOLONE [Concomitant]
     Active Substance: PREDNISOLONE
     Route: 065
  9. AMINOPHYLLINE [Concomitant]
     Active Substance: AMINOPHYLLINE
     Route: 065
  10. HYDROXYZINE [Concomitant]
     Active Substance: HYDROXYZINE HYDROCHLORIDE
     Route: 065

REACTIONS (6)
  - Diffuse alopecia [Recovering/Resolving]
  - Xerosis [Recovering/Resolving]
  - Pruritus [Recovering/Resolving]
  - Paronychia [Recovering/Resolving]
  - Ingrowing nail [Recovering/Resolving]
  - Blood creatine phosphokinase increased [Recovering/Resolving]

NARRATIVE: CASE EVENT DATE: 20250401
